FAERS Safety Report 10153626 (Version 1)
Quarter: 2014Q2

REPORT INFORMATION
  Report Type: Spontaneous
  Country: AR (occurrence: AR)
  Receive Date: 20140505
  Receipt Date: 20140505
  Transmission Date: 20141212
  Serious: Yes (Other)
  Sender: FDA-Public Use
  Company Number: AR-ABBVIE-14P-007-1230472-00

PATIENT
  Age: 74 Year
  Sex: 0

DRUGS (1)
  1. HUMIRA [Suspect]
     Indication: PRODUCT USED FOR UNKNOWN INDICATION
     Dates: start: 20100513, end: 20131118

REACTIONS (3)
  - Granuloma [Recovered/Resolved]
  - Upper respiratory fungal infection [Recovered/Resolved]
  - Histoplasmosis [Unknown]
